FAERS Safety Report 7477888-3 (Version None)
Quarter: 2011Q2

REPORT INFORMATION
  Report Type: 
  Country: None (occurrence: None)
  Receive Date: 20110511
  Receipt Date: 20110511
  Transmission Date: 20111010
  Serious: Yes (Other)
  Sender: FDA-Public Use
  Company Number: None

PATIENT
  Sex: Female

DRUGS (1)
  1. ENBREL [Suspect]
     Dosage: 50MG QW SQ
     Route: 058
     Dates: start: 20110407, end: 20110508

REACTIONS (5)
  - DRUG HYPERSENSITIVITY [None]
  - URTICARIA [None]
  - PAIN [None]
  - PYREXIA [None]
  - NAUSEA [None]
